FAERS Safety Report 4368687-X (Version None)
Quarter: 2004Q2

REPORT INFORMATION
  Report Type: 
  Country: None (occurrence: None)
  Receive Date: 20040601
  Receipt Date: 20040601
  Transmission Date: 20050107
  Serious: No
  Sender: FDA-Public Use
  Company Number: None

PATIENT
  Sex: Male
  Weight: 78 kg

DRUGS (4)
  1. CARBOPLATIN [Suspect]
     Dosage: 814 MG
     Dates: end: 20040414
  2. CELEBREX [Suspect]
     Dosage: 4800 MG
     Dates: end: 20040419
  3. GEMCITABINE [Suspect]
     Dosage: 3960 MG
     Dates: end: 20040421
  4. ZILEUTON [Suspect]
     Dosage: 10800 MG
     Dates: end: 20040419

REACTIONS (3)
  - DEHYDRATION [None]
  - NAUSEA [None]
  - VOMITING [None]
